FAERS Safety Report 8463802 (Version 3)
Quarter: 2012Q4

REPORT INFORMATION
  Report Type: 
  Country: US (occurrence: US)
  Receive Date: 20120316
  Receipt Date: 20121022
  Transmission Date: 20130627
  Serious: Yes (Death, Life-Threatening, Hospitalization)
  Sender: FDA-Public Use
  Company Number: US-GLAXOSMITHKLINE-A0970006A

PATIENT
  Age: 69 Year
  Sex: Female
  Weight: 108 kg

DRUGS (3)
  1. FLOLAN [Suspect]
     Indication: PULMONARY ARTERIAL HYPERTENSION
     Dosage: 6NGKM Unknown
     Route: 042
     Dates: start: 20120301, end: 20120315
  2. REVATIO [Concomitant]
     Dosage: 20MG Three times per day
     Route: 048
  3. ASPIRIN [Concomitant]

REACTIONS (6)
  - Renal failure [Unknown]
  - Death [Fatal]
  - Fluid overload [Unknown]
  - Dyspnoea [Unknown]
  - Hypotension [Unknown]
  - Urine output decreased [Unknown]
